FAERS Safety Report 7002529-9 (Version None)
Quarter: 2010Q3

REPORT INFORMATION
  Report Type: 
  Country: None (occurrence: None)
  Receive Date: 20100920
  Receipt Date: 20100325
  Transmission Date: 20110219
  Serious: No
  Sender: FDA-Public Use
  Company Number: US-ASTRAZENECA-2010SE13253

PATIENT
  Sex: Female
  Weight: 55.3 kg

DRUGS (2)
  1. SEROQUEL XR [Suspect]
     Indication: DEPRESSION
     Route: 048
     Dates: start: 20090301
  2. PROZAC [Concomitant]
     Indication: DEPRESSION

REACTIONS (1)
  - PAIN IN EXTREMITY [None]
